FAERS Safety Report 13181174 (Version 1)
Quarter: 2017Q1

REPORT INFORMATION
  Report Type: Spontaneous
  Country: US (occurrence: US)
  Receive Date: 20170202
  Receipt Date: 20170202
  Transmission Date: 20170428
  Serious: No
  Sender: FDA-Public Use
  Company Number: US-SMITH AND NEPHEW, INC-2016SMT00949

PATIENT
  Age: 48 Year
  Sex: Male
  Weight: 61.22 kg

DRUGS (8)
  1. UNSPECIFIED DIABETES MEDICATION [Concomitant]
  2. GABAPENTIN. [Concomitant]
     Active Substance: GABAPENTIN
  3. IRON [Concomitant]
     Active Substance: IRON
  4. UNSPECIFIED CHOLESTEROL MEDICATION [Concomitant]
     Active Substance: UNSPECIFIED INGREDIENT
  5. UNSPECIFIED BLOOD PRESSURE MEDICATIONS [Concomitant]
  6. REGRANEX [Suspect]
     Active Substance: BECAPLERMIN
     Indication: WOUND
     Dosage: UNK, 1X/DAY
     Route: 061
     Dates: start: 201610
  7. UNSPECIFIED INSULIN PRODUCT [Concomitant]
  8. CREON [Concomitant]
     Active Substance: PANCRELIPASE AMYLASE\PANCRELIPASE LIPASE\PANCRELIPASE PROTEASE

REACTIONS (3)
  - Wound haemorrhage [Not Recovered/Not Resolved]
  - Wound complication [Not Recovered/Not Resolved]
  - Wound secretion [Not Recovered/Not Resolved]

NARRATIVE: CASE EVENT DATE: 201610
